FAERS Safety Report 21768499 (Version 1)
Quarter: 2022Q4

REPORT INFORMATION
  Report Type: Spontaneous
  Country: US (occurrence: None)
  Receive Date: 20221221
  Receipt Date: 20221221
  Transmission Date: 20230112
  Serious: No
  Sender: FDA-Public Use
  Company Number: None

PATIENT
  Age: 57 Year
  Sex: Female

DRUGS (1)
  1. LEVOTHYROXINE [Suspect]
     Active Substance: LEVOTHYROXINE
     Indication: Post procedural hypothyroidism
     Dosage: FREQUENCY : DAILY;?
     Route: 048
     Dates: start: 20100724, end: 201107

REACTIONS (3)
  - Fatigue [None]
  - Manufacturing issue [None]
  - Product quality issue [None]

NARRATIVE: CASE EVENT DATE: 20100802
